FAERS Safety Report 7473228-4 (Version None)
Quarter: 2011Q2

REPORT INFORMATION
  Report Type: 
  Country: None (occurrence: None)
  Receive Date: 20110511
  Receipt Date: 20110509
  Transmission Date: 20111010
  Serious: Yes (Hospitalization)
  Sender: FDA-Public Use
  Company Number: B0717925A

PATIENT
  Age: 59 Year
  Sex: Male

DRUGS (1)
  1. AVANDIA [Suspect]
     Dosage: 8MG PER DAY
     Route: 048
     Dates: start: 20000101, end: 20080101

REACTIONS (7)
  - LOSS OF CONSCIOUSNESS [None]
  - HEART RATE DECREASED [None]
  - DIZZINESS [None]
  - CEREBRAL HYPOPERFUSION [None]
  - CARDIAC PACEMAKER INSERTION [None]
  - SYNCOPE [None]
  - ARRHYTHMIA [None]
